FAERS Safety Report 24804916 (Version 2)
Quarter: 2025Q1

REPORT INFORMATION
  Report Type: Spontaneous
  Country: US (occurrence: US)
  Receive Date: 20250103
  Receipt Date: 20250109
  Transmission Date: 20250409
  Serious: Yes (Life-Threatening, Hospitalization)
  Sender: PFIZER
  Company Number: US-MLMSERVICE-20241223-PI317183-00273-1

PATIENT
  Age: 58 Year
  Sex: Male
  Weight: 140 kg

DRUGS (3)
  1. PROPOFOL [Suspect]
     Active Substance: PROPOFOL
     Indication: Sedative therapy
     Route: 042
  2. PROPOFOL [Suspect]
     Active Substance: PROPOFOL
  3. KETAMINE [Concomitant]
     Active Substance: KETAMINE
     Indication: Sedative therapy
     Route: 042

REACTIONS (2)
  - Toxicity to various agents [Recovering/Resolving]
  - Opisthotonus [Recovering/Resolving]
